FAERS Safety Report 7050581-7 (Version None)
Quarter: 2010Q4

REPORT INFORMATION
  Report Type: 
  Country: None (occurrence: None)
  Receive Date: 20101018
  Receipt Date: 20101005
  Transmission Date: 20110411
  Serious: Yes (Hospitalization)
  Sender: FDA-Public Use
  Company Number: US-ELI_LILLY_AND_COMPANY-US201010001291

PATIENT
  Age: 3 Year
  Sex: Male

DRUGS (1)
  1. HUMALOG [Suspect]
     Dosage: 0.5 U, UNKNOWN

REACTIONS (1)
  - GENERAL PHYSICAL HEALTH DETERIORATION [None]
